FAERS Safety Report 7010908-9 (Version None)
Quarter: 2010Q3

REPORT INFORMATION
  Report Type: 
  Country: None (occurrence: None)
  Receive Date: 20100923
  Receipt Date: 20100923
  Transmission Date: 20110219
  Serious: Yes (Life-Threatening, Hospitalization)
  Sender: FDA-Public Use
  Company Number: None

PATIENT
  Age: 17 Year
  Sex: Female
  Weight: 34 kg

DRUGS (1)
  1. JUTRIAN RX BLUE FOOD GRADE H2O2 35% H2O2, COLLOIDAL SILVER GUARDIAN OF [Suspect]
     Indication: ECZEMA
     Dosage: UNK UNK PO
     Route: 048
     Dates: start: 20100901, end: 20100916

REACTIONS (5)
  - CHEMICAL INJURY [None]
  - DERMATITIS [None]
  - DROOLING [None]
  - GASTROINTESTINAL ULCER [None]
  - WEIGHT DECREASED [None]
